FAERS Safety Report 8118257-2 (Version None)
Quarter: 2012Q1

REPORT INFORMATION
  Report Type: 
  Country: None (occurrence: None)
  Receive Date: 20120207
  Receipt Date: 20120127
  Transmission Date: 20120608
  Serious: No
  Sender: FDA-Public Use
  Company Number: JP-SANOFI-AVENTIS-2012SA004493

PATIENT

DRUGS (3)
  1. ANTINEOPLASTIC AGENTS [Concomitant]
  2. PACLITAXEL [Suspect]
     Route: 065
  3. LASIX [Suspect]
     Route: 065

REACTIONS (1)
  - STOMATITIS [None]
